FAERS Safety Report 17242077 (Version 2)
Quarter: 2021Q1

REPORT INFORMATION
  Report Type: Report from Study
  Country: US (occurrence: US)
  Receive Date: 20200107
  Receipt Date: 20210208
  Transmission Date: 20210419
  Serious: Yes (Death)
  Sender: FDA-Public Use
  Company Number: US-PFIZER INC-2020000639

PATIENT

DRUGS (6)
  1. CRENOLANIB [Suspect]
     Active Substance: CRENOLANIB
     Dosage: 100 MG, 3X/DAY (STARTED AFTER HIDAC OR 30?90 DAYS AFTER HSCT FOR UP TO 12 CYCLES)
  2. CYTARABINE. [Suspect]
     Active Substance: CYTARABINE
     Dosage: UNK UNK, CYCLIC (HIGH?DOSE, 1 G/M^2, Q12H ON DAYS 1, 3, AND 5)
  3. CYTARABINE. [Suspect]
     Active Substance: CYTARABINE
     Dosage: UNK, CYCLIC (MAINTENANCE)
  4. CRENOLANIB [Suspect]
     Active Substance: CRENOLANIB
     Indication: ACUTE MYELOID LEUKAEMIA
     Dosage: 100 MG, 3X/DAY (TID WAS ADMINISTERED CONTINUOUSLY STARTING 24 HOURS AFTER CHEMOTHERAPY UNTIL
  5. CYTARABINE. [Suspect]
     Active Substance: CYTARABINE
     Indication: ACUTE MYELOID LEUKAEMIA
     Dosage: 100 MG/M2, CYCLIC (7+3 INDUCTION WITH CYTARABINE FOR 7 DAYS)
  6. CRENOLANIB [Suspect]
     Active Substance: CRENOLANIB
     Dosage: UNK (STARTING 24 HOURS AFTER THE FINAL HIDAC DOSE)

REACTIONS (1)
  - Death [Fatal]
